FAERS Safety Report 6136148-3 (Version None)
Quarter: 2009Q1

REPORT INFORMATION
  Report Type: 
  Country: None (occurrence: None)
  Receive Date: 20090330
  Receipt Date: 20090324
  Transmission Date: 20090719
  Serious: Yes (Other)
  Sender: FDA-Public Use
  Company Number: CA-AMGEN-KDL339050

PATIENT

DRUGS (9)
  1. ARANESP [Suspect]
     Indication: RENAL FAILURE CHRONIC
     Dates: start: 20090120
  2. FERROUS SULFATE TAB [Concomitant]
  3. PLAVIX [Concomitant]
  4. PANTOPRAZOLE SODIUM [Concomitant]
  5. NORVASC [Concomitant]
  6. BISOPROLOL [Concomitant]
  7. CRESTOR [Concomitant]
  8. CALCIUM CARBONATE [Concomitant]
  9. FUROSEMIDE [Concomitant]

REACTIONS (6)
  - BLISTER [None]
  - DERMATITIS CONTACT [None]
  - DRUG ERUPTION [None]
  - ECZEMA [None]
  - RASH ERYTHEMATOUS [None]
  - RASH MACULO-PAPULAR [None]
